FAERS Safety Report 10264614 (Version 1)
Quarter: 2014Q2

REPORT INFORMATION
  Report Type: Spontaneous
  Country: FR (occurrence: FR)
  Receive Date: 20140627
  Receipt Date: 20140627
  Transmission Date: 20141212
  Serious: Yes (Hospitalization)
  Sender: FDA-Public Use
  Company Number: PHHY2014FR079104

PATIENT
  Age: 65 Year
  Sex: Female

DRUGS (4)
  1. ACLASTA [Suspect]
     Dosage: 5 MG, UNK
     Route: 042
  2. ACLASTA [Suspect]
     Dosage: 5 MG, UNK
     Route: 042
  3. ACLASTA [Suspect]
     Dosage: 5 MG, UNK
     Route: 042
  4. ACLASTA [Suspect]
     Dosage: 5 MG, UNK
     Route: 042

REACTIONS (1)
  - Osteonecrosis [Unknown]
